FAERS Safety Report 25016542 (Version 22)
Quarter: 2025Q3

REPORT INFORMATION
  Report Type: Spontaneous
  Country: GB (occurrence: GB)
  Receive Date: 20250227
  Receipt Date: 20250902
  Transmission Date: 20251020
  Serious: Yes (Hospitalization, Other)
  Sender: SANDOZ
  Company Number: GB-AMGEN-GBRSP2024192455

PATIENT
  Age: 54 Year
  Sex: Female
  Weight: 71 kg

DRUGS (213)
  1. ADALIMUMAB [Suspect]
     Active Substance: ADALIMUMAB
     Route: 058
  2. ADALIMUMAB [Suspect]
     Active Substance: ADALIMUMAB
     Route: 058
  3. ADALIMUMAB [Suspect]
     Active Substance: ADALIMUMAB
     Route: 065
  4. ADALIMUMAB [Suspect]
     Active Substance: ADALIMUMAB
     Route: 058
  5. ADALIMUMAB [Suspect]
     Active Substance: ADALIMUMAB
     Route: 058
  6. ADALIMUMAB [Suspect]
     Active Substance: ADALIMUMAB
     Route: 058
  7. ADALIMUMAB [Suspect]
     Active Substance: ADALIMUMAB
     Route: 065
  8. ADALIMUMAB [Suspect]
     Active Substance: ADALIMUMAB
     Route: 065
  9. ADALIMUMAB [Suspect]
     Active Substance: ADALIMUMAB
     Route: 065
  10. ADALIMUMAB [Suspect]
     Active Substance: ADALIMUMAB
     Route: 065
  11. ADALIMUMAB [Suspect]
     Active Substance: ADALIMUMAB
     Route: 065
  12. ADALIMUMAB [Suspect]
     Active Substance: ADALIMUMAB
     Route: 065
  13. ADALIMUMAB [Suspect]
     Active Substance: ADALIMUMAB
     Route: 065
  14. ADALIMUMAB [Suspect]
     Active Substance: ADALIMUMAB
     Route: 065
  15. ADALIMUMAB [Suspect]
     Active Substance: ADALIMUMAB
     Route: 065
  16. ADALIMUMAB [Suspect]
     Active Substance: ADALIMUMAB
     Route: 065
  17. ADALIMUMAB [Suspect]
     Active Substance: ADALIMUMAB
     Route: 065
  18. ADALIMUMAB [Suspect]
     Active Substance: ADALIMUMAB
     Route: 065
  19. ADALIMUMAB [Suspect]
     Active Substance: ADALIMUMAB
     Route: 065
  20. ADALIMUMAB [Suspect]
     Active Substance: ADALIMUMAB
     Route: 065
  21. ADALIMUMAB [Suspect]
     Active Substance: ADALIMUMAB
     Route: 065
  22. ADALIMUMAB [Suspect]
     Active Substance: ADALIMUMAB
     Route: 065
  23. ADALIMUMAB [Suspect]
     Active Substance: ADALIMUMAB
     Route: 065
  24. ADALIMUMAB [Suspect]
     Active Substance: ADALIMUMAB
     Route: 065
  25. ADALIMUMAB [Suspect]
     Active Substance: ADALIMUMAB
     Route: 065
  26. ADALIMUMAB [Suspect]
     Active Substance: ADALIMUMAB
     Route: 065
  27. ADALIMUMAB [Suspect]
     Active Substance: ADALIMUMAB
     Route: 065
  28. ADALIMUMAB [Suspect]
     Active Substance: ADALIMUMAB
     Route: 065
  29. ADALIMUMAB [Suspect]
     Active Substance: ADALIMUMAB
     Route: 065
  30. ADALIMUMAB [Suspect]
     Active Substance: ADALIMUMAB
     Route: 065
  31. ADALIMUMAB [Suspect]
     Active Substance: ADALIMUMAB
     Route: 065
  32. ADALIMUMAB [Suspect]
     Active Substance: ADALIMUMAB
     Route: 065
  33. ADALIMUMAB [Suspect]
     Active Substance: ADALIMUMAB
     Route: 065
  34. ADALIMUMAB [Suspect]
     Active Substance: ADALIMUMAB
     Route: 065
  35. ADALIMUMAB [Suspect]
     Active Substance: ADALIMUMAB
     Route: 065
  36. ADALIMUMAB [Suspect]
     Active Substance: ADALIMUMAB
     Route: 065
  37. ADALIMUMAB [Suspect]
     Active Substance: ADALIMUMAB
     Route: 065
  38. ADALIMUMAB [Suspect]
     Active Substance: ADALIMUMAB
     Route: 065
  39. ADALIMUMAB [Suspect]
     Active Substance: ADALIMUMAB
     Route: 065
  40. ADALIMUMAB [Suspect]
     Active Substance: ADALIMUMAB
     Route: 065
  41. ADALIMUMAB [Suspect]
     Active Substance: ADALIMUMAB
     Route: 065
  42. ADALIMUMAB [Suspect]
     Active Substance: ADALIMUMAB
     Route: 065
  43. ADALIMUMAB [Suspect]
     Active Substance: ADALIMUMAB
     Route: 065
  44. ADALIMUMAB [Suspect]
     Active Substance: ADALIMUMAB
     Route: 065
  45. ADALIMUMAB [Suspect]
     Active Substance: ADALIMUMAB
     Route: 065
  46. ADALIMUMAB [Suspect]
     Active Substance: ADALIMUMAB
     Route: 065
  47. ADALIMUMAB [Suspect]
     Active Substance: ADALIMUMAB
     Route: 065
  48. ADALIMUMAB [Suspect]
     Active Substance: ADALIMUMAB
     Route: 065
  49. ADALIMUMAB [Suspect]
     Active Substance: ADALIMUMAB
     Route: 065
  50. ADALIMUMAB [Suspect]
     Active Substance: ADALIMUMAB
     Route: 065
  51. ADALIMUMAB [Suspect]
     Active Substance: ADALIMUMAB
     Route: 065
  52. ADALIMUMAB [Suspect]
     Active Substance: ADALIMUMAB
     Route: 065
  53. ADALIMUMAB [Suspect]
     Active Substance: ADALIMUMAB
     Route: 065
  54. ADALIMUMAB [Suspect]
     Active Substance: ADALIMUMAB
     Route: 065
  55. ADALIMUMAB [Suspect]
     Active Substance: ADALIMUMAB
     Route: 065
  56. ADALIMUMAB [Suspect]
     Active Substance: ADALIMUMAB
     Route: 065
  57. ADALIMUMAB [Suspect]
     Active Substance: ADALIMUMAB
     Route: 065
  58. ADALIMUMAB [Suspect]
     Active Substance: ADALIMUMAB
     Route: 065
  59. ADALIMUMAB [Suspect]
     Active Substance: ADALIMUMAB
     Route: 065
  60. ADALIMUMAB [Suspect]
     Active Substance: ADALIMUMAB
     Route: 065
  61. ADALIMUMAB [Suspect]
     Active Substance: ADALIMUMAB
     Route: 065
  62. ADALIMUMAB [Suspect]
     Active Substance: ADALIMUMAB
     Route: 065
  63. ADALIMUMAB [Suspect]
     Active Substance: ADALIMUMAB
     Route: 065
  64. ADALIMUMAB [Suspect]
     Active Substance: ADALIMUMAB
     Route: 065
  65. ADALIMUMAB [Suspect]
     Active Substance: ADALIMUMAB
     Route: 065
  66. ADALIMUMAB [Suspect]
     Active Substance: ADALIMUMAB
     Route: 065
  67. ADALIMUMAB [Suspect]
     Active Substance: ADALIMUMAB
     Route: 065
  68. ADALIMUMAB [Suspect]
     Active Substance: ADALIMUMAB
     Route: 065
  69. ADALIMUMAB [Suspect]
     Active Substance: ADALIMUMAB
     Route: 065
  70. ADALIMUMAB [Suspect]
     Active Substance: ADALIMUMAB
     Route: 065
  71. ADALIMUMAB [Suspect]
     Active Substance: ADALIMUMAB
     Route: 065
  72. ADALIMUMAB [Suspect]
     Active Substance: ADALIMUMAB
     Route: 065
  73. ADALIMUMAB [Suspect]
     Active Substance: ADALIMUMAB
     Route: 065
  74. ADALIMUMAB [Suspect]
     Active Substance: ADALIMUMAB
     Route: 065
  75. ADALIMUMAB [Suspect]
     Active Substance: ADALIMUMAB
     Route: 065
  76. ADALIMUMAB [Suspect]
     Active Substance: ADALIMUMAB
     Route: 065
  77. ADALIMUMAB [Suspect]
     Active Substance: ADALIMUMAB
     Route: 065
  78. ADALIMUMAB [Suspect]
     Active Substance: ADALIMUMAB
     Route: 065
  79. ADALIMUMAB [Suspect]
     Active Substance: ADALIMUMAB
     Route: 065
  80. ADALIMUMAB [Suspect]
     Active Substance: ADALIMUMAB
     Route: 065
  81. ADALIMUMAB [Suspect]
     Active Substance: ADALIMUMAB
     Route: 065
  82. ADALIMUMAB [Suspect]
     Active Substance: ADALIMUMAB
     Route: 065
  83. ADALIMUMAB [Suspect]
     Active Substance: ADALIMUMAB
     Route: 065
  84. ADALIMUMAB [Suspect]
     Active Substance: ADALIMUMAB
     Route: 065
  85. ADALIMUMAB [Suspect]
     Active Substance: ADALIMUMAB
     Route: 065
  86. ADALIMUMAB [Suspect]
     Active Substance: ADALIMUMAB
     Route: 058
  87. ADALIMUMAB [Suspect]
     Active Substance: ADALIMUMAB
     Route: 058
  88. ADALIMUMAB [Suspect]
     Active Substance: ADALIMUMAB
     Route: 058
  89. ADALIMUMAB [Suspect]
     Active Substance: ADALIMUMAB
     Route: 058
  90. ADALIMUMAB [Suspect]
     Active Substance: ADALIMUMAB
     Route: 058
  91. ADALIMUMAB [Suspect]
     Active Substance: ADALIMUMAB
     Route: 058
  92. ADALIMUMAB [Suspect]
     Active Substance: ADALIMUMAB
     Route: 058
  93. ADALIMUMAB [Suspect]
     Active Substance: ADALIMUMAB
     Route: 058
  94. ADALIMUMAB [Suspect]
     Active Substance: ADALIMUMAB
     Route: 058
  95. ADALIMUMAB [Suspect]
     Active Substance: ADALIMUMAB
     Route: 058
  96. ADALIMUMAB [Suspect]
     Active Substance: ADALIMUMAB
     Route: 058
  97. ADALIMUMAB [Suspect]
     Active Substance: ADALIMUMAB
     Route: 065
  98. ADALIMUMAB [Suspect]
     Active Substance: ADALIMUMAB
     Route: 058
  99. ADALIMUMAB [Suspect]
     Active Substance: ADALIMUMAB
     Route: 058
  100. ADALIMUMAB [Suspect]
     Active Substance: ADALIMUMAB
     Route: 058
  101. ADALIMUMAB [Suspect]
     Active Substance: ADALIMUMAB
     Route: 058
  102. ADALIMUMAB [Suspect]
     Active Substance: ADALIMUMAB
     Route: 058
  103. ADALIMUMAB [Suspect]
     Active Substance: ADALIMUMAB
     Route: 058
  104. ADALIMUMAB [Suspect]
     Active Substance: ADALIMUMAB
     Route: 058
  105. ADALIMUMAB [Suspect]
     Active Substance: ADALIMUMAB
     Route: 058
  106. ADALIMUMAB [Suspect]
     Active Substance: ADALIMUMAB
     Route: 058
  107. ADALIMUMAB [Suspect]
     Active Substance: ADALIMUMAB
     Route: 058
  108. ADALIMUMAB [Suspect]
     Active Substance: ADALIMUMAB
     Route: 058
  109. ADALIMUMAB [Suspect]
     Active Substance: ADALIMUMAB
     Route: 058
  110. ADALIMUMAB [Suspect]
     Active Substance: ADALIMUMAB
     Route: 058
  111. ADALIMUMAB [Suspect]
     Active Substance: ADALIMUMAB
     Route: 058
  112. ADALIMUMAB [Suspect]
     Active Substance: ADALIMUMAB
     Route: 058
  113. ADALIMUMAB [Suspect]
     Active Substance: ADALIMUMAB
     Route: 058
  114. ADALIMUMAB [Suspect]
     Active Substance: ADALIMUMAB
     Route: 058
  115. ADALIMUMAB [Suspect]
     Active Substance: ADALIMUMAB
     Route: 058
  116. ADALIMUMAB [Suspect]
     Active Substance: ADALIMUMAB
     Route: 058
  117. ADALIMUMAB [Suspect]
     Active Substance: ADALIMUMAB
     Route: 058
  118. ADALIMUMAB [Suspect]
     Active Substance: ADALIMUMAB
     Route: 058
  119. ADALIMUMAB [Suspect]
     Active Substance: ADALIMUMAB
     Route: 058
  120. ADALIMUMAB [Suspect]
     Active Substance: ADALIMUMAB
     Route: 058
  121. ADALIMUMAB [Suspect]
     Active Substance: ADALIMUMAB
     Route: 058
  122. ADALIMUMAB [Suspect]
     Active Substance: ADALIMUMAB
     Route: 058
  123. ADALIMUMAB [Suspect]
     Active Substance: ADALIMUMAB
     Route: 058
  124. ADALIMUMAB [Suspect]
     Active Substance: ADALIMUMAB
     Route: 058
  125. ADALIMUMAB [Suspect]
     Active Substance: ADALIMUMAB
     Route: 058
  126. ADALIMUMAB [Suspect]
     Active Substance: ADALIMUMAB
     Route: 058
  127. ADALIMUMAB [Suspect]
     Active Substance: ADALIMUMAB
     Route: 065
  128. ADALIMUMAB [Suspect]
     Active Substance: ADALIMUMAB
     Route: 058
  129. ADALIMUMAB [Suspect]
     Active Substance: ADALIMUMAB
     Route: 065
  130. ADALIMUMAB [Suspect]
     Active Substance: ADALIMUMAB
     Route: 065
  131. ADALIMUMAB [Suspect]
     Active Substance: ADALIMUMAB
     Route: 065
  132. ADALIMUMAB [Suspect]
     Active Substance: ADALIMUMAB
     Route: 065
  133. ADALIMUMAB [Suspect]
     Active Substance: ADALIMUMAB
     Route: 065
  134. ADALIMUMAB [Suspect]
     Active Substance: ADALIMUMAB
     Route: 065
  135. ADALIMUMAB [Suspect]
     Active Substance: ADALIMUMAB
     Route: 065
  136. ADALIMUMAB [Suspect]
     Active Substance: ADALIMUMAB
     Route: 065
  137. ADALIMUMAB [Suspect]
     Active Substance: ADALIMUMAB
     Route: 065
  138. ADALIMUMAB [Suspect]
     Active Substance: ADALIMUMAB
     Route: 065
  139. ADALIMUMAB [Suspect]
     Active Substance: ADALIMUMAB
     Route: 065
  140. ADALIMUMAB [Suspect]
     Active Substance: ADALIMUMAB
     Route: 065
  141. ADALIMUMAB [Suspect]
     Active Substance: ADALIMUMAB
     Route: 058
  142. ADALIMUMAB [Suspect]
     Active Substance: ADALIMUMAB
     Route: 065
  143. ADALIMUMAB [Suspect]
     Active Substance: ADALIMUMAB
     Indication: Product used for unknown indication
     Route: 065
  144. ADALIMUMAB [Suspect]
     Active Substance: ADALIMUMAB
     Indication: Product used for unknown indication
     Route: 065
  145. LETROZOLE [Suspect]
     Active Substance: LETROZOLE
     Dosage: 2.5 MG
     Route: 048
     Dates: start: 20240221, end: 20240430
  146. LETROZOLE [Suspect]
     Active Substance: LETROZOLE
     Indication: Breast cancer female
     Dosage: 2.5 MG, QD (2.5 MG, DAILY)/ (DOSAGE1:  UNIT=NOT AVAILABLE) / (CUMULATIVE DOSE  TO FIRST REACTION: 98
     Route: 048
     Dates: start: 20240221, end: 20240430
  147. LETROZOLE [Suspect]
     Active Substance: LETROZOLE
     Dosage: 2.5 MG, QD
     Route: 048
     Dates: start: 20240221, end: 20240430
  148. LETROZOLE [Suspect]
     Active Substance: LETROZOLE
     Dosage: 2.5 MG, QD
     Route: 048
     Dates: start: 20240221, end: 20240430
  149. LETROZOLE [Suspect]
     Active Substance: LETROZOLE
     Dosage: 2.5 MG, QD (1X/DAY)
     Route: 048
     Dates: start: 20240221, end: 20240430
  150. LETROZOLE [Suspect]
     Active Substance: LETROZOLE
     Indication: Breast cancer
     Dosage: 2.5 MG, QD, (2.5 MG, DAILY)/ (DOSAGE1:  UNIT=NOT AVAILABLE) / (CUMULATIVE DOSE  TO FIRST REACTION: 9
     Route: 048
     Dates: start: 20240221, end: 20240430
  151. LETROZOLE [Suspect]
     Active Substance: LETROZOLE
     Dosage: 2.5 MG, QD,(2.5 MG, DAILY)/ (DOSAGE1:  UNIT=NOT AVAILABLE) / (CUMULATIVE DOSE  TO FIRST REACTION: 98
     Route: 048
     Dates: start: 20240221, end: 20240430
  152. LETROZOLE [Suspect]
     Active Substance: LETROZOLE
     Dosage: 2.5 MG, QD,D (2.5 MG, DAILY)/ (DOSAGE1:  UNIT=NOT AVAILABLE) / (CUMULATIVE DOSE  TO FIRST REACTION:
     Route: 048
     Dates: start: 20240221, end: 20240430
  153. LETROZOLE [Suspect]
     Active Substance: LETROZOLE
     Dosage: 2.5 MILLIGRAM, QD (1X/DAY)
     Route: 048
     Dates: start: 20240221, end: 20240430
  154. PALBOCICLIB [Suspect]
     Active Substance: PALBOCICLIB
     Indication: Breast cancer female
     Route: 048
     Dates: start: 20240221, end: 20240423
  155. PALBOCICLIB [Suspect]
     Active Substance: PALBOCICLIB
     Route: 048
     Dates: start: 20240221, end: 20240423
  156. PALBOCICLIB [Suspect]
     Active Substance: PALBOCICLIB
     Route: 048
     Dates: start: 20240221, end: 20240424
  157. PALBOCICLIB [Suspect]
     Active Substance: PALBOCICLIB
     Indication: Breast cancer
     Route: 048
     Dates: start: 20240221, end: 20240423
  158. SECUKINUMAB [Suspect]
     Active Substance: SECUKINUMAB
     Route: 065
  159. SECUKINUMAB [Suspect]
     Active Substance: SECUKINUMAB
     Route: 065
  160. SECUKINUMAB [Suspect]
     Active Substance: SECUKINUMAB
     Route: 065
  161. SECUKINUMAB [Suspect]
     Active Substance: SECUKINUMAB
     Route: 058
  162. SECUKINUMAB [Suspect]
     Active Substance: SECUKINUMAB
     Route: 058
  163. SECUKINUMAB [Suspect]
     Active Substance: SECUKINUMAB
     Route: 058
  164. SECUKINUMAB [Suspect]
     Active Substance: SECUKINUMAB
     Route: 058
  165. SECUKINUMAB [Suspect]
     Active Substance: SECUKINUMAB
     Route: 065
  166. SECUKINUMAB [Suspect]
     Active Substance: SECUKINUMAB
     Route: 065
  167. SECUKINUMAB [Suspect]
     Active Substance: SECUKINUMAB
     Route: 065
  168. SECUKINUMAB [Suspect]
     Active Substance: SECUKINUMAB
     Route: 065
  169. SECUKINUMAB [Suspect]
     Active Substance: SECUKINUMAB
     Route: 065
  170. SECUKINUMAB [Suspect]
     Active Substance: SECUKINUMAB
     Route: 065
  171. SECUKINUMAB [Suspect]
     Active Substance: SECUKINUMAB
     Indication: Product used for unknown indication
     Route: 058
  172. SECUKINUMAB [Suspect]
     Active Substance: SECUKINUMAB
     Route: 058
  173. SECUKINUMAB [Suspect]
     Active Substance: SECUKINUMAB
     Route: 058
  174. SECUKINUMAB [Suspect]
     Active Substance: SECUKINUMAB
     Route: 058
  175. SECUKINUMAB [Suspect]
     Active Substance: SECUKINUMAB
     Route: 058
  176. SECUKINUMAB [Suspect]
     Active Substance: SECUKINUMAB
     Route: 058
  177. SECUKINUMAB [Suspect]
     Active Substance: SECUKINUMAB
     Route: 058
  178. SECUKINUMAB [Suspect]
     Active Substance: SECUKINUMAB
     Route: 058
  179. SECUKINUMAB [Suspect]
     Active Substance: SECUKINUMAB
     Route: 058
  180. SECUKINUMAB [Suspect]
     Active Substance: SECUKINUMAB
     Route: 058
  181. SECUKINUMAB [Suspect]
     Active Substance: SECUKINUMAB
     Route: 058
  182. SECUKINUMAB [Suspect]
     Active Substance: SECUKINUMAB
     Route: 058
  183. SECUKINUMAB [Suspect]
     Active Substance: SECUKINUMAB
     Route: 058
  184. SECUKINUMAB [Suspect]
     Active Substance: SECUKINUMAB
     Route: 058
  185. SECUKINUMAB [Suspect]
     Active Substance: SECUKINUMAB
     Route: 058
  186. SECUKINUMAB [Suspect]
     Active Substance: SECUKINUMAB
     Route: 058
  187. SECUKINUMAB [Suspect]
     Active Substance: SECUKINUMAB
     Route: 058
  188. SECUKINUMAB [Suspect]
     Active Substance: SECUKINUMAB
     Route: 058
  189. SECUKINUMAB [Suspect]
     Active Substance: SECUKINUMAB
     Route: 058
  190. SECUKINUMAB [Suspect]
     Active Substance: SECUKINUMAB
     Route: 058
  191. SECUKINUMAB [Suspect]
     Active Substance: SECUKINUMAB
     Route: 058
  192. SECUKINUMAB [Suspect]
     Active Substance: SECUKINUMAB
     Route: 058
  193. SECUKINUMAB [Suspect]
     Active Substance: SECUKINUMAB
     Route: 065
  194. SECUKINUMAB [Suspect]
     Active Substance: SECUKINUMAB
     Route: 065
  195. SECUKINUMAB [Suspect]
     Active Substance: SECUKINUMAB
     Route: 065
  196. SECUKINUMAB [Suspect]
     Active Substance: SECUKINUMAB
     Route: 065
  197. SECUKINUMAB [Suspect]
     Active Substance: SECUKINUMAB
     Route: 065
  198. SECUKINUMAB [Suspect]
     Active Substance: SECUKINUMAB
     Route: 065
  199. SECUKINUMAB [Suspect]
     Active Substance: SECUKINUMAB
     Route: 065
  200. SECUKINUMAB [Suspect]
     Active Substance: SECUKINUMAB
     Route: 065
  201. SECUKINUMAB [Suspect]
     Active Substance: SECUKINUMAB
     Route: 065
  202. SECUKINUMAB [Suspect]
     Active Substance: SECUKINUMAB
     Route: 065
  203. SECUKINUMAB [Suspect]
     Active Substance: SECUKINUMAB
     Route: 065
  204. SECUKINUMAB [Suspect]
     Active Substance: SECUKINUMAB
     Route: 065
  205. SECUKINUMAB [Suspect]
     Active Substance: SECUKINUMAB
     Route: 065
  206. SECUKINUMAB [Suspect]
     Active Substance: SECUKINUMAB
     Route: 065
  207. SECUKINUMAB [Suspect]
     Active Substance: SECUKINUMAB
     Route: 065
  208. EDOXABAN TOSYLATE [Concomitant]
     Active Substance: EDOXABAN TOSYLATE
     Indication: Product used for unknown indication
     Route: 048
     Dates: start: 202401
  209. EDOXABAN TOSYLATE [Concomitant]
     Active Substance: EDOXABAN TOSYLATE
     Route: 048
     Dates: start: 202401, end: 202401
  210. EDOXABAN TOSYLATE [Concomitant]
     Active Substance: EDOXABAN TOSYLATE
     Route: 048
     Dates: start: 202401
  211. EDOXABAN TOSYLATE [Concomitant]
     Active Substance: EDOXABAN TOSYLATE
     Route: 065
     Dates: start: 202401, end: 202401
  212. EDOXABAN TOSYLATE [Concomitant]
     Active Substance: EDOXABAN TOSYLATE
     Route: 065
     Dates: start: 202401
  213. EDOXABAN TOSYLATE [Concomitant]
     Active Substance: EDOXABAN TOSYLATE
     Route: 065
     Dates: start: 202401

REACTIONS (5)
  - Anaemia [Recovered/Resolved]
  - Neoplasm progression [Unknown]
  - Metastases to bone [Unknown]
  - Systemic lupus erythematosus [Unknown]
  - White blood cell count decreased [Unknown]

NARRATIVE: CASE EVENT DATE: 20240330
